FAERS Safety Report 6565997-2 (Version None)
Quarter: 2010Q1

REPORT INFORMATION
  Report Type: 
  Country: None (occurrence: None)
  Receive Date: 20100129
  Receipt Date: 20100129
  Transmission Date: 20100710
  Serious: No
  Sender: FDA-Public Use
  Company Number: None

PATIENT
  Age: 63 Year
  Sex: Female

DRUGS (1)
  1. RECLAST [Suspect]
     Indication: OSTEOPOROSIS
     Dosage: 5 MG ONETIME IV PIGGYBACK
     Route: 042
     Dates: start: 20100112, end: 20100112

REACTIONS (7)
  - ARTHRALGIA [None]
  - BACK PAIN [None]
  - HEADACHE [None]
  - INFLUENZA LIKE ILLNESS [None]
  - JOINT SWELLING [None]
  - NAUSEA [None]
  - VOMITING [None]
